FAERS Safety Report 5513953-5 (Version None)
Quarter: 2007Q4

REPORT INFORMATION
  Report Type: 
  Country: None (occurrence: None)
  Receive Date: 20071113
  Receipt Date: 20071108
  Transmission Date: 20080405
  Serious: Yes (Other)
  Sender: FDA-Public Use
  Company Number: RS-BRISTOL-MYERS SQUIBB COMPANY-13914908

PATIENT
  Age: 45 Year
  Sex: Female

DRUGS (7)
  1. PLATINEX [Suspect]
     Indication: SQUAMOUS CELL CARCINOMA OF SKIN
     Dosage: 80MG/M2,REPEAT THERAPY ON 3 WEEKS
     Route: 042
  2. ONDASAN [Concomitant]
  3. DEXASONE [Concomitant]
  4. RANISAN [Concomitant]
  5. MANNITOL [Concomitant]
  6. TRAMADOL [Concomitant]
  7. HARTMANN SOLUTION [Concomitant]

REACTIONS (7)
  - ASTHENIA [None]
  - BLOOD TEST ABNORMAL [None]
  - DYSPNOEA [None]
  - HYPOAESTHESIA [None]
  - HYPOTENSION [None]
  - MALAISE [None]
  - TACHYCARDIA [None]
